FAERS Safety Report 10493634 (Version 4)
Quarter: 2016Q2

REPORT INFORMATION
  Report Type: Spontaneous
  Country: US (occurrence: US)
  Receive Date: 20141002
  Receipt Date: 20160406
  Transmission Date: 20160815
  Serious: Yes (Other)
  Sender: FDA-Public Use
  Company Number: US-GLAXOSMITHKLINE-A1086526A

PATIENT
  Age: 79 Year
  Sex: Female

DRUGS (4)
  1. VENTOLIN [Suspect]
     Active Substance: ALBUTEROL SULFATE
     Indication: ASTHMA
     Dosage: AS NEEDED
     Route: 065
     Dates: start: 2008
  2. VENTOLIN [Suspect]
     Active Substance: ALBUTEROL SULFATE
     Indication: MULTIPLE ALLERGIES
  3. ADVAIR HFA [Suspect]
     Active Substance: FLUTICASONE PROPIONATE\SALMETEROL XINAFOATE
     Indication: ASTHMA
     Dosage: 250/50 MCG
     Route: 055
     Dates: start: 2008
  4. METFORMIN [Concomitant]
     Active Substance: METFORMIN HYDROCHLORIDE
     Indication: PRODUCT USED FOR UNKNOWN INDICATION

REACTIONS (14)
  - Deafness [Unknown]
  - Macular degeneration [Unknown]
  - Haematoma [Unknown]
  - Peripheral swelling [Recovering/Resolving]
  - Chronic obstructive pulmonary disease [Unknown]
  - Emergency care examination [Unknown]
  - Bronchitis [Unknown]
  - Abnormal dreams [Not Recovered/Not Resolved]
  - Dementia [Unknown]
  - Fall [Recovered/Resolved]
  - Blindness [Unknown]
  - Urinary tract infection [Unknown]
  - Hallucination [Unknown]
  - Haematoma evacuation [Recovered/Resolved]

NARRATIVE: CASE EVENT DATE: 20140821
